FAERS Safety Report 6848257-1 (Version None)
Quarter: 2010Q3

REPORT INFORMATION
  Report Type: 
  Country: None (occurrence: None)
  Receive Date: 20100716
  Receipt Date: 20100702
  Transmission Date: 20110219
  Serious: Yes (Hospitalization)
  Sender: FDA-Public Use
  Company Number: JP-ROCHE-623197

PATIENT
  Sex: Female
  Weight: 23 kg

DRUGS (15)
  1. ACTEMRA [Suspect]
     Indication: JUVENILE ARTHRITIS
     Route: 041
     Dates: start: 20080830, end: 20080830
  2. ACTEMRA [Suspect]
     Route: 041
     Dates: start: 20081007, end: 20081007
  3. ACTEMRA [Suspect]
     Route: 041
     Dates: start: 20081101, end: 20081101
  4. ACTEMRA [Suspect]
     Route: 041
     Dates: start: 20081128, end: 20081128
  5. ACTEMRA [Suspect]
     Route: 041
     Dates: start: 20081220, end: 20081220
  6. ACTEMRA [Suspect]
     Route: 041
     Dates: start: 20090114, end: 20090114
  7. ACTEMRA [Suspect]
     Route: 041
     Dates: start: 20090207, end: 20090207
  8. ACTEMRA [Suspect]
     Route: 041
     Dates: start: 20090228
  9. ACTEMRA [Suspect]
     Route: 041
     Dates: start: 20100513
  10. PREDNISOLONE [Concomitant]
     Dosage: DRUG: UNKNOWNDRUG (PREDNISOLONE), DOSE FORM: PERORAL AGENT
     Route: 048
     Dates: end: 20080809
  11. PREDNISOLONE [Concomitant]
     Route: 048
     Dates: start: 20080810
  12. FROBEN [Concomitant]
     Route: 048
  13. MARZULENE S [Concomitant]
     Dosage: DRUG: MARZULENE-S(SODIUM AZULENE SULFONATE_L-GLUTAMINE), FORM: GRANULATED POWDER
     Route: 048
  14. ZADITEN [Concomitant]
     Route: 048
  15. MUCODYNE [Concomitant]
     Dosage: FORM: MINUTE GRAIN
     Route: 048
     Dates: start: 20080913

REACTIONS (2)
  - PLEURISY [None]
  - PNEUMONIA [None]
